FAERS Safety Report 16743910 (Version 1)
Quarter: 2019Q3

REPORT INFORMATION
  Report Type: Spontaneous
  Country: FR (occurrence: FR)
  Receive Date: 20190827
  Receipt Date: 20190827
  Transmission Date: 20191005
  Serious: Yes (Hospitalization)
  Sender: FDA-Public Use
  Company Number: FR-TEVA-2019-FR-1096701

PATIENT
  Age: 78 Year
  Sex: Male
  Weight: 57 kg

DRUGS (2)
  1. VANCOMYCINE [Suspect]
     Active Substance: VANCOMYCIN
     Indication: INTERVERTEBRAL DISCITIS
     Route: 042
     Dates: start: 20160825, end: 20160904
  2. RIFADINE [Suspect]
     Active Substance: RIFAMPIN
     Indication: INTERVERTEBRAL DISCITIS
     Route: 042
     Dates: start: 20160825, end: 20160904

REACTIONS (1)
  - Linear IgA disease [Recovering/Resolving]

NARRATIVE: CASE EVENT DATE: 20160904
